FAERS Safety Report 20135729 (Version 1)
Quarter: 2021Q4

REPORT INFORMATION
  Report Type: Spontaneous
  Country: US (occurrence: None)
  Receive Date: 20211201
  Receipt Date: 20211201
  Transmission Date: 20220303
  Serious: No
  Sender: FDA-Public Use
  Company Number: None

PATIENT
  Age: 59 Year
  Sex: Male
  Weight: 149 kg

DRUGS (1)
  1. CASIRIVIMAB\IMDEVIMAB [Suspect]
     Active Substance: CASIRIVIMAB\IMDEVIMAB
     Indication: Product used for unknown indication
     Dosage: FREQUENCY : ONCE;?
     Dates: start: 20211124, end: 20211124

REACTIONS (9)
  - Back pain [None]
  - Pain [None]
  - Chest pain [None]
  - Dizziness [None]
  - Muscle spasms [None]
  - Myalgia [None]
  - Cold sweat [None]
  - Arthralgia [None]
  - Infusion related reaction [None]

NARRATIVE: CASE EVENT DATE: 20211124
